FAERS Safety Report 8951357 (Version 1)
Quarter: 2012Q4

REPORT INFORMATION
  Report Type: 
  Country: CO (occurrence: CO)
  Receive Date: 20121207
  Receipt Date: 20121207
  Transmission Date: 20130627
  Serious: Yes (Other)
  Sender: FDA-Public Use
  Company Number: CO-UCBSA-072501

PATIENT
  Age: 39 Year
  Sex: Female

DRUGS (6)
  1. CIMZIA [Suspect]
     Indication: RHEUMATOID ARTHRITIS
     Route: 058
     Dates: start: 20120811, end: 20120908
  2. FOLIC ACID [Concomitant]
  3. PREDNISOLONE [Concomitant]
  4. METHOTREXATE [Concomitant]
     Dosage: DOSE 28 MG
     Route: 048
  5. SULFASALAZINE [Concomitant]
     Dosage: DOSE: 500 MG
  6. CALCIUM +VITAMIN D [Concomitant]
     Dosage: 1 TABLET
     Route: 048

REACTIONS (2)
  - Abortion missed [Unknown]
  - Pregnancy [Recovered/Resolved]
